FAERS Safety Report 5619501-3 (Version None)
Quarter: 2008Q1

REPORT INFORMATION
  Report Type: 
  Country: None (occurrence: None)
  Receive Date: 20080111
  Receipt Date: 20070517
  Transmission Date: 20080703
  Serious: Yes (Hospitalization)
  Sender: FDA-Public Use
  Company Number: 07-001135

PATIENT
  Age: 30 Year
  Sex: Female
  Weight: 111.1 kg

DRUGS (5)
  1. FEMCON FE [Suspect]
     Indication: MENSTRUATION IRREGULAR
     Dosage: 0.4 MG/35 MCG, QD, ORAL
     Route: 048
     Dates: start: 20070101, end: 20070201
  2. FEMCON FE [Suspect]
     Indication: OVARIAN CYST
     Dosage: 0.4 MG/35 MCG, QD, ORAL
     Route: 048
     Dates: start: 20070101, end: 20070201
  3. OVCON-35 [Suspect]
     Indication: MENSTRUATION IRREGULAR
     Dosage: 0.4 MG/35 MCG, QD, ORAL
     Route: 048
     Dates: start: 20050101, end: 20060101
  4. OVCON-35 [Suspect]
     Indication: OVARIAN CYST
     Dosage: 0.4 MG/35 MCG, QD, ORAL
     Route: 048
     Dates: start: 20050101, end: 20060101
  5. ADVAIR DISKUS 100/50 [Concomitant]

REACTIONS (2)
  - DEEP VEIN THROMBOSIS [None]
  - PULMONARY EMBOLISM [None]
